FAERS Safety Report 16379188 (Version 3)
Quarter: 2019Q3

REPORT INFORMATION
  Report Type: Spontaneous
  Country: US (occurrence: US)
  Receive Date: 20190531
  Receipt Date: 20190711
  Transmission Date: 20191004
  Serious: Yes (Hospitalization, Other)
  Sender: FDA-Public Use
  Company Number: US-ASTRAZENECA-2019SE78651

PATIENT
  Age: 846 Month
  Sex: Female
  Weight: 208 kg

DRUGS (2)
  1. BYDUREON [Suspect]
     Active Substance: EXENATIDE
     Indication: TYPE 2 DIABETES MELLITUS
     Route: 058
  2. SYNTHROID [Concomitant]
     Active Substance: LEVOTHYROXINE SODIUM

REACTIONS (16)
  - Painful respiration [Unknown]
  - Atrial fibrillation [Unknown]
  - Food craving [Unknown]
  - Injection site pain [Recovered/Resolved]
  - Device malfunction [Unknown]
  - Memory impairment [Unknown]
  - Anxiety [Unknown]
  - Wound haemorrhage [Unknown]
  - Pruritus [Unknown]
  - Pancreatic disorder [Unknown]
  - Incorrect dose administered by device [Recovered/Resolved]
  - Wrong technique in device usage process [Recovered/Resolved]
  - Myocardial infarction [Recovered/Resolved]
  - Dyspnoea [Unknown]
  - Acne [Unknown]
  - Product dose omission [Unknown]

NARRATIVE: CASE EVENT DATE: 201905
